FAERS Safety Report 6191602-3 (Version None)
Quarter: 2009Q2

REPORT INFORMATION
  Report Type: 
  Country: None (occurrence: None)
  Receive Date: 20090515
  Receipt Date: 20090507
  Transmission Date: 20091009
  Serious: Yes (Other)
  Sender: FDA-Public Use
  Company Number: PHHY2009GB13915

PATIENT
  Sex: Female

DRUGS (4)
  1. ACLASTA [Suspect]
     Indication: OSTEOPOROSIS
     Dosage: 5 MG, UNK
     Route: 042
     Dates: start: 20090201
  2. ACLASTA [Suspect]
     Indication: HEPATO-LENTICULAR DEGENERATION
  3. CALCICHEW D3 [Concomitant]
     Indication: OSTEOPOROSIS
     Dosage: 2 DF, UNK
     Route: 048
     Dates: start: 20090101
  4. TRIENTINE DIHYDROCHLORIDE [Concomitant]
     Indication: HEPATO-LENTICULAR DEGENERATION
     Dosage: 300 MG QDS

REACTIONS (1)
  - VITAMIN D DEFICIENCY [None]
